FAERS Safety Report 5950777-9 (Version None)
Quarter: 2008Q4

REPORT INFORMATION
  Report Type: 
  Country: None (occurrence: None)
  Receive Date: 20081112
  Receipt Date: 20080916
  Transmission Date: 20090506
  Serious: No
  Sender: FDA-Public Use
  Company Number: US-B.I. PHARMACEUTICALS,INC./RIDGEFIELD-2008-BP-13593BP

PATIENT
  Sex: Male
  Weight: 78 kg

DRUGS (6)
  1. SPIRIVA [Suspect]
     Indication: CHRONIC OBSTRUCTIVE PULMONARY DISEASE
     Dosage: 18MCG
     Route: 055
  2. ASTELIN [Concomitant]
     Dates: start: 20070401
  3. ALUPENT [Concomitant]
     Dates: start: 20070401
  4. PULMICORT-100 [Concomitant]
     Dates: start: 20070401
  5. MONOPRIL [Concomitant]
  6. NASACORT [Concomitant]
     Dates: start: 20070401

REACTIONS (2)
  - PROSTATOMEGALY [None]
  - URINARY RETENTION [None]
